FAERS Safety Report 8822375 (Version 1)
Quarter: 2012Q4

REPORT INFORMATION
  Report Type: 
  Country: CO (occurrence: CO)
  Receive Date: 20121003
  Receipt Date: 20121003
  Transmission Date: 20130627
  Serious: Yes (Death)
  Sender: FDA-Public Use
  Company Number: PHHY2012CO085303

PATIENT
  Sex: Male

DRUGS (2)
  1. EXJADE [Suspect]
     Indication: APLASTIC ANAEMIA
     Dosage: 500 mg, QD
     Route: 048
     Dates: start: 20111205
  2. CYCLOSPORINE [Concomitant]

REACTIONS (1)
  - Disease complication [Fatal]
